FAERS Safety Report 7028251-0 (Version None)
Quarter: 2010Q4

REPORT INFORMATION
  Report Type: 
  Country: None (occurrence: None)
  Receive Date: 20101005
  Receipt Date: 20100924
  Transmission Date: 20110411
  Serious: Yes (Hospitalization)
  Sender: FDA-Public Use
  Company Number: JP-ROCHE-626693

PATIENT
  Age: 66 Year
  Sex: Female
  Weight: 55 kg

DRUGS (8)
  1. TOCILIZUMAB [Suspect]
     Indication: RHEUMATOID ARTHRITIS
     Route: 041
     Dates: start: 20090309, end: 20090309
  2. ACTONEL [Suspect]
     Indication: OSTEOPOROSIS
     Route: 048
     Dates: start: 20090227, end: 20090323
  3. PREDNISOLONE [Concomitant]
     Dosage: DOSE FORM: PERORAL AGENT
     Route: 048
     Dates: end: 20090903
  4. PREDNISOLONE [Concomitant]
     Dosage: DOSE FORM: PERORAL AGENT
     Route: 048
     Dates: start: 20090904
  5. TAKEPRON [Concomitant]
     Dosage: DOSE FORM: PERORAL AGENT
     Route: 048
  6. BLOPRESS [Concomitant]
     Route: 048
  7. CRESTOR [Concomitant]
     Route: 048
     Dates: start: 20090310
  8. BENET [Concomitant]
     Route: 048
     Dates: start: 20090324, end: 20090327

REACTIONS (1)
  - NAUSEA [None]
